FAERS Safety Report 25283396 (Version 1)
Quarter: 2025Q2

REPORT INFORMATION
  Report Type: Spontaneous
  Country: US (occurrence: US)
  Receive Date: 20250508
  Receipt Date: 20250508
  Transmission Date: 20250717
  Serious: Yes (Other)
  Sender: AMGEN
  Company Number: US-AMGEN-USASP2025086966

PATIENT

DRUGS (1)
  1. PREDNISONE [Suspect]
     Active Substance: PREDNISONE
     Indication: Chronic graft versus host disease in skin
     Route: 065

REACTIONS (5)
  - Chronic graft versus host disease oral [Unknown]
  - Application site ulcer [Unknown]
  - Application site hypersensitivity [Unknown]
  - Application site pain [Unknown]
  - Off label use [Unknown]
